FAERS Safety Report 19821728 (Version 1)
Quarter: 2021Q3

REPORT INFORMATION
  Report Type: Spontaneous
  Country: US (occurrence: US)
  Receive Date: 20210913
  Receipt Date: 20210913
  Transmission Date: 20211014
  Serious: Yes (Other)
  Sender: FDA-Public Use
  Company Number: US-009507513-2109USA001871

PATIENT
  Sex: Female

DRUGS (1)
  1. BELSOMRA [Suspect]
     Active Substance: SUVOREXANT
     Dosage: 5 MILLIGRAM
     Route: 048

REACTIONS (5)
  - Haemorrhage [Unknown]
  - Fall [Unknown]
  - Head injury [Unknown]
  - Gait disturbance [Unknown]
  - Scratch [Unknown]
